FAERS Safety Report 9111358 (Version 1)
Quarter: 2013Q1

REPORT INFORMATION
  Report Type: Spontaneous
  Country: US (occurrence: US)
  Receive Date: 20130219
  Receipt Date: 20130219
  Transmission Date: 20140127
  Serious: No
  Sender: FDA-Public Use
  Company Number: US-BRISTOL-MYERS SQUIBB COMPANY-16435950

PATIENT
  Age: 63 Year
  Sex: Female
  Weight: 113 kg

DRUGS (9)
  1. ORENCIA [Suspect]
     Dosage: THERAPY FOR 7 WEEKS
     Route: 058
  2. PREDNISONE [Concomitant]
  3. LEFLUNOMIDE [Concomitant]
     Indication: SLEEP DISORDER
  4. HYDROCODONE [Concomitant]
  5. DIOVAN [Concomitant]
  6. ATENOLOL [Concomitant]
  7. HYDROCHLOROTHIAZIDE [Concomitant]
  8. VITAMINS [Concomitant]
  9. TRAZODONE HCL [Concomitant]
     Indication: SLEEP DISORDER

REACTIONS (1)
  - Cystitis [Unknown]
